FAERS Safety Report 11008668 (Version 1)
Quarter: 2015Q2

REPORT INFORMATION
  Report Type: Spontaneous
  Country: US (occurrence: None)
  Receive Date: 20150408
  Receipt Date: 20150408
  Transmission Date: 20150821
  Serious: Yes (Hospitalization)
  Sender: FDA-Public Use
  Company Number: US-H14001-15-00502

PATIENT
  Age: 39 Year
  Sex: Female

DRUGS (7)
  1. MORPHINE [Concomitant]
     Active Substance: MORPHINE
  2. HEPARIN [Concomitant]
     Active Substance: HEPARIN SODIUM
  3. METOPROLOL (METOPROLOL) (UNKNOWN) (METOPROLOL) [Suspect]
     Active Substance: METOPROLOL
     Indication: ACUTE MYOCARDIAL INFARCTION
  4. PRASUGREL [Concomitant]
     Active Substance: PRASUGREL
  5. DEXAMETHASONE (DEXAMETHASONE SODIUM PHOSPHATE) (UNKNOWN) (DEXAMETHASONE SODIUM PHOSPHATE) [Suspect]
     Active Substance: DEXAMETHASONE SODIUM PHOSPHATE
     Indication: PHARYNGITIS STREPTOCOCCAL
  6. ANTIBIOTICS [Concomitant]
     Active Substance: UNSPECIFIED INGREDIENT
  7. ASPIRIN (ACETYLSALICYLIC ACID) [Concomitant]
     Active Substance: ASPIRIN

REACTIONS (10)
  - Phaeochromocytoma [None]
  - Acute myocardial infarction [None]
  - Hypertension [None]
  - Acute respiratory failure [None]
  - Pulmonary oedema [None]
  - Stress cardiomyopathy [None]
  - Acute coronary syndrome [None]
  - Palpitations [None]
  - Chest pain [None]
  - Cardiogenic shock [None]
